FAERS Safety Report 11072185 (Version 1)
Quarter: 2015Q2

REPORT INFORMATION
  Report Type: Spontaneous
  Country: DE (occurrence: DE)
  Receive Date: 20150428
  Receipt Date: 20150428
  Transmission Date: 20150821
  Serious: Yes (Hospitalization)
  Sender: FDA-Public Use
  Company Number: DE-PFIZER INC-2015141745

PATIENT
  Age: 93 Year
  Sex: Female

DRUGS (16)
  1. LEVEMIR [Concomitant]
     Active Substance: INSULIN DETEMIR
     Dosage: 12 IU, DAILY
  2. IS 5 MONO [Interacting]
     Active Substance: ISOSORBIDE MONONITRATE
     Dosage: 20 MG, DAILY
  3. AMLODIPIN PFIZER [Suspect]
     Active Substance: AMLODIPINE BESYLATE
     Dosage: 50 MG, DAILY
  4. DOMINAL /00002701/ [Interacting]
     Active Substance: ASPIRIN
     Dosage: 80 MG, DAILY
  5. SEROQUEL [Interacting]
     Active Substance: QUETIAPINE FUMARATE
     Dosage: 50 MG, DAILY
     Dates: start: 20081110, end: 20081110
  6. LACTULOSE. [Concomitant]
     Active Substance: LACTULOSE
     Dosage: 1 DF, DAILY
  7. MAGNESIOCARD [Concomitant]
     Active Substance: MAGNESIUM ASPARTATE HYDROCHLORIDE
     Dosage: 1 DF, DAILY
  8. BISOPROLOL [Interacting]
     Active Substance: BISOPROLOL
     Dosage: 5 MG, DAILY
  9. ATACAND [Interacting]
     Active Substance: CANDESARTAN CILEXETIL
     Dosage: 8 MG, DAILY
  10. KALINOR /00031402/ [Concomitant]
     Active Substance: POTASSIUM CITRATE
     Dosage: 1 DF, DAILY
  11. TOREM /01036501/ [Interacting]
     Active Substance: TORSEMIDE
     Dosage: 20 MG, DAILY
  12. TRAMAL [Interacting]
     Active Substance: TRAMADOL
     Dosage: 100 MG, DAILY
  13. NOVORAPID [Concomitant]
     Active Substance: INSULIN ASPART
     Dosage: 24 IU, DAILY
  14. RISPERDAL [Concomitant]
     Active Substance: RISPERIDONE
     Dosage: 1 MG, DAILY
     Dates: start: 20081104, end: 20081109
  15. CARBIMAZOLE [Concomitant]
     Active Substance: CARBIMAZOLE
     Dosage: 5 MG, UNK
  16. PLAVIX [Concomitant]
     Active Substance: CLOPIDOGREL BISULFATE
     Dosage: 75 MG, DAILY

REACTIONS (4)
  - Hypotension [Recovered/Resolved]
  - Drug interaction [Unknown]
  - Unresponsive to stimuli [None]
  - Dizziness [Recovered/Resolved]

NARRATIVE: CASE EVENT DATE: 20081111
